FAERS Safety Report 17211013 (Version 1)
Quarter: 2019Q4

REPORT INFORMATION
  Report Type: Spontaneous
  Country: JP (occurrence: JP)
  Receive Date: 20191227
  Receipt Date: 20191227
  Transmission Date: 20200122
  Serious: Yes (Hospitalization, Other)
  Sender: FDA-Public Use
  Company Number: JP-BAXTER-2019BAX026243

PATIENT
  Age: 71 Year
  Sex: Female

DRUGS (13)
  1. BAYASPIRIN [Suspect]
     Active Substance: ASPIRIN
     Indication: THROMBOSIS PROPHYLAXIS
     Route: 048
     Dates: start: 20191001, end: 20191203
  2. PREDONINE [Suspect]
     Active Substance: PREDNISOLONE
     Route: 048
     Dates: start: 20191126
  3. ZOLEDRONIC ACID HYDRATE [Suspect]
     Active Substance: ZOLEDRONIC ACID
     Indication: PRODUCT USED FOR UNKNOWN INDICATION
     Route: 065
     Dates: start: 20191019
  4. VELCADE [Suspect]
     Active Substance: BORTEZOMIB
     Indication: PLASMA CELL MYELOMA
     Dosage: 4 TIMES, FIRST COURSE OF VRD-LITE THERAPY
     Route: 065
     Dates: start: 20191001, end: 20191029
  5. PREDONINE [Suspect]
     Active Substance: PREDNISOLONE
     Route: 065
  6. ENDOXAN [Suspect]
     Active Substance: CYCLOPHOSPHAMIDE
     Indication: PLASMA CELL MYELOMA
     Dosage: 4 TIMES, FIRST COURSE OF VCD THERAPY, DOSAGE FORM: TABLET
     Route: 048
     Dates: start: 20191113, end: 20191116
  7. DEXAMETHASONE. [Suspect]
     Active Substance: DEXAMETHASONE
     Indication: PLASMA CELL MYELOMA
     Dosage: FIRST COURSE OF VRD-LITE THERAPY, FOR 2 DAYS, 4 TIMES
     Route: 065
     Dates: start: 20191001, end: 20191029
  8. VELCADE [Suspect]
     Active Substance: BORTEZOMIB
     Dosage: 4 TIMES, FIRST COURSE OF VCD THERAPY
     Route: 065
     Dates: start: 20191112
  9. PREDONINE [Suspect]
     Active Substance: PREDNISOLONE
     Route: 048
     Dates: start: 20191119, end: 20191125
  10. VELCADE [Suspect]
     Active Substance: BORTEZOMIB
     Route: 065
     Dates: start: 20191126, end: 20191126
  11. REVLIMID [Suspect]
     Active Substance: LENALIDOMIDE
     Indication: PLASMA CELL MYELOMA
     Dosage: FIRST COURSE OF VRD-LITE THERAPY FOR 14 DAYS
     Route: 065
     Dates: start: 20191001, end: 20191029
  12. PREDONINE [Suspect]
     Active Substance: PREDNISOLONE
     Indication: RASH
     Route: 048
     Dates: start: 20191112, end: 20191118
  13. OLOPATADINE HYDROCHLORIDE. [Suspect]
     Active Substance: OLOPATADINE HYDROCHLORIDE
     Indication: PRODUCT USED FOR UNKNOWN INDICATION
     Route: 048
     Dates: start: 20191029, end: 20191111

REACTIONS (6)
  - Gastric ulcer [Unknown]
  - Loss of consciousness [Unknown]
  - Accidental overdose [Unknown]
  - Small intestinal haemorrhage [Recovered/Resolved]
  - Melaena [Unknown]
  - Blood loss anaemia [Unknown]

NARRATIVE: CASE EVENT DATE: 20191113
